FAERS Safety Report 24561194 (Version 2)
Quarter: 2024Q4

REPORT INFORMATION
  Report Type: Spontaneous
  Country: KR (occurrence: KR)
  Receive Date: 20241029
  Receipt Date: 20241209
  Transmission Date: 20250115
  Serious: No
  Sender: PFIZER
  Company Number: KR-PFIZER INC-PV202400137044

PATIENT
  Age: 11 Year
  Sex: Female

DRUGS (2)
  1. NGENLA [Suspect]
     Active Substance: SOMATROGON-GHLA
     Dosage: 24 MG, WEEKLY
     Route: 058
     Dates: start: 20241018, end: 20241018
  2. NGENLA [Suspect]
     Active Substance: SOMATROGON-GHLA
     Dosage: 3 MG, WEEKLY
     Route: 058
     Dates: start: 20241018, end: 20241018

REACTIONS (1)
  - Injection site pain [Recovered/Resolved]
